FAERS Safety Report 14462068 (Version 9)
Quarter: 2018Q3

REPORT INFORMATION
  Report Type: Spontaneous
  Country: DE (occurrence: DE)
  Receive Date: 20180130
  Receipt Date: 20180906
  Transmission Date: 20181010
  Serious: Yes (Other)
  Sender: FDA-Public Use
  Company Number: PHHY2017DE199934

PATIENT
  Age: 36 Year
  Sex: Female
  Weight: 84 kg

DRUGS (6)
  1. MAGISTRAL [Concomitant]
     Indication: PSORIASIS
     Dosage: UNK UNK, AS NEEDED
     Route: 065
     Dates: start: 20161122, end: 20170110
  2. ENBREL [Suspect]
     Active Substance: ETANERCEPT
     Indication: PSORIATIC ARTHROPATHY
     Dosage: 50 MG, QW
     Route: 065
     Dates: start: 20160913, end: 20170113
  3. ENBREL [Suspect]
     Active Substance: ETANERCEPT
     Indication: PSORIASIS
     Dosage: 50 MG, QW
     Route: 065
     Dates: start: 20170225, end: 20170904
  4. AMOXICILLIN+CLAVULANIC ACID [Suspect]
     Active Substance: AMOXICILLIN\CLAVULANIC ACID
     Indication: BRONCHITIS
     Dosage: 2 G, BID
     Route: 048
     Dates: start: 20170113, end: 20170114
  5. BETAMETHASONE. [Concomitant]
     Active Substance: BETAMETHASONE
     Indication: PSORIASIS
     Dosage: 1 %, PRN
     Route: 065
     Dates: start: 20161122, end: 20170115
  6. TIABENDAZOLE [Concomitant]
     Active Substance: THIABENDAZOLE
     Indication: PSORIASIS
     Dosage: UNK, PRN
     Route: 065
     Dates: start: 20161122, end: 20170110

REACTIONS (4)
  - Bronchitis [Recovered/Resolved]
  - Rash generalised [Recovered/Resolved]
  - Drug hypersensitivity [Recovered/Resolved]
  - Rash maculo-papular [Recovered/Resolved]

NARRATIVE: CASE EVENT DATE: 20170113
